FAERS Safety Report 6210697-1 (Version None)
Quarter: 2009Q2

REPORT INFORMATION
  Report Type: 
  Country: None (occurrence: None)
  Receive Date: 20090528
  Receipt Date: 20090528
  Transmission Date: 20091009
  Serious: Yes (Other)
  Sender: FDA-Public Use
  Company Number: None

PATIENT
  Sex: Male
  Weight: 88.4514 kg

DRUGS (1)
  1. BACTRIM [Suspect]
     Indication: CARBUNCLE
     Dosage: 1 PILL TWICE A DAY

REACTIONS (7)
  - PENILE SWELLING [None]
  - PENILE ULCERATION [None]
  - PENIS DISORDER [None]
  - PRURITUS [None]
  - RASH [None]
  - SCAB [None]
  - SKIN EXFOLIATION [None]
